FAERS Safety Report 20745890 (Version 1)
Quarter: 2022Q2

REPORT INFORMATION
  Report Type: Spontaneous
  Country: US (occurrence: None)
  Receive Date: 20220424
  Receipt Date: 20220424
  Transmission Date: 20220721
  Serious: Yes (Hospitalization)
  Sender: FDA-Public Use
  Company Number: None

PATIENT

DRUGS (1)
  1. GILENYA [Suspect]
     Active Substance: FINGOLIMOD HYDROCHLORIDE
     Indication: Multiple sclerosis

REACTIONS (8)
  - Hypoaesthesia [None]
  - Gait inability [None]
  - Bladder disorder [None]
  - Speech disorder [None]
  - Vision blurred [None]
  - Cognitive disorder [None]
  - Personality disorder [None]
  - Multiple sclerosis relapse [None]

NARRATIVE: CASE EVENT DATE: 20210927
